FAERS Safety Report 9002500 (Version 1)
Quarter: 2013Q1

REPORT INFORMATION
  Report Type: Spontaneous
  Country: US (occurrence: US)
  Receive Date: 20130107
  Receipt Date: 20130107
  Transmission Date: 20140127
  Serious: No
  Sender: FDA-Public Use
  Company Number: US-TEVA-378967USA

PATIENT
  Age: 30 Year
  Sex: Female
  Weight: 104.42 kg

DRUGS (4)
  1. PLAN B ONE-STEP [Suspect]
     Indication: POST COITAL CONTRACEPTION
     Dosage: 1.5 MILLIGRAM DAILY;
     Route: 048
     Dates: start: 20121226, end: 20121226
  2. ORTHO TRI CYCLEN [Concomitant]
     Indication: CONTRACEPTION
  3. PROZAC [Concomitant]
     Indication: DEPRESSION
  4. RESTORIL [Concomitant]
     Indication: INSOMNIA

REACTIONS (1)
  - Menstruation irregular [Not Recovered/Not Resolved]
